FAERS Safety Report 7749361-6 (Version None)
Quarter: 2011Q3

REPORT INFORMATION
  Report Type: 
  Country: None (occurrence: None)
  Receive Date: 20110825
  Receipt Date: 20110624
  Transmission Date: 20111222
  Serious: No
  Sender: FDA-Public Use
  Company Number: 330733

PATIENT
  Age: 68 Year
  Sex: Female

DRUGS (1)
  1. VICTOZA [Suspect]
     Indication: TYPE 2 DIABETES MELLITUS
     Dosage: 1.8 MG, QD, SUBCUTANEOUS:TYPE2 DIABETES (TYPE 2 DIABETES MELLITUS)
     Route: 058
     Dates: start: 20110608

REACTIONS (1)
  - INJECTION SITE DISCOMFORT [None]
